FAERS Safety Report 7028572-1 (Version None)
Quarter: 2010Q3

REPORT INFORMATION
  Report Type: 
  Country: None (occurrence: None)
  Receive Date: 20100920
  Receipt Date: 20100625
  Transmission Date: 20110219
  Serious: Yes (Hospitalization, Other)
  Sender: FDA-Public Use
  Company Number: 2010034401

PATIENT
  Age: 60 Year
  Sex: Male

DRUGS (3)
  1. DILANTIN-125 [Suspect]
     Indication: CONVULSION
     Dosage: 100MG ORALLY EVERY EIGHT HOURLY, ORAL; 300MG ONCE DAILY, ORAL; 350 MG, DAILY; 100MG THREE ONCE A DAY
     Route: 048
  2. DILANTIN [Suspect]
     Indication: CONVULSION
     Dosage: 50MG, DAILY, ORAL
     Route: 048
  3. DILANTIN [Suspect]
     Indication: CONVULSION
     Dosage: 500 MG, INTRAVENOUS
     Route: 042

REACTIONS (1)
  - STEVENS-JOHNSON SYNDROME [None]
